FAERS Safety Report 15363091 (Version 1)
Quarter: 2018Q3

REPORT INFORMATION
  Report Type: Report from Study
  Country: US (occurrence: US)
  Receive Date: 20180907
  Receipt Date: 20180907
  Transmission Date: 20181010
  Serious: Yes (Other)
  Sender: FDA-Public Use
  Company Number: US-ADAMAS PHARMA, LLC-2018ADA02118

PATIENT
  Age: 72 Year
  Sex: Male

DRUGS (4)
  1. GOCOVRI [Suspect]
     Active Substance: AMANTADINE
     Dosage: 274 MG, 1X/DAY AT BEDTIME
     Route: 048
     Dates: start: 20180801, end: 201808
  2. GOCOVRI [Suspect]
     Active Substance: AMANTADINE
     Dosage: 137 MG, 1X/DAY AT BEDTIME
     Route: 048
     Dates: start: 201808, end: 201808
  3. GOCOVRI [Suspect]
     Active Substance: AMANTADINE
     Indication: DYSKINESIA
     Dosage: 137 MG, 1X/DAY AT BEDTIME
     Route: 048
     Dates: start: 20180725, end: 20180731
  4. UNSPECIFIED LEVODOPA?BASED THERAPY [Concomitant]

REACTIONS (8)
  - Hypophagia [Unknown]
  - Dizziness [Recovering/Resolving]
  - Unevaluable event [Unknown]
  - Seizure [Recovered/Resolved]
  - Urinary incontinence [Unknown]
  - Somnolence [Recovering/Resolving]
  - Dehydration [Unknown]
  - Fall [Recovered/Resolved]

NARRATIVE: CASE EVENT DATE: 2018
